FAERS Safety Report 7564394-0 (Version None)
Quarter: 2011Q2

REPORT INFORMATION
  Report Type: 
  Country: None (occurrence: None)
  Receive Date: 20110622
  Receipt Date: 20110610
  Transmission Date: 20111010
  Serious: Yes (Other)
  Sender: FDA-Public Use
  Company Number: PHHY2011JP19652

PATIENT
  Age: 16 Year
  Sex: Female

DRUGS (10)
  1. MELPHALAN HYDROCHLORIDE [Concomitant]
     Dosage: 60 MG/M2 X 2
  2. CYCLOSPORINE [Suspect]
     Indication: PROPHYLAXIS AGAINST GRAFT VERSUS HOST DISEASE
  3. METHOTREXATE [Concomitant]
     Indication: PROPHYLAXIS AGAINST GRAFT VERSUS HOST DISEASE
  4. CYCLOSPORINE [Suspect]
     Indication: STEM CELL TRANSPLANT
  5. TACROLIMUS [Concomitant]
     Indication: PROPHYLAXIS AGAINST GRAFT VERSUS HOST DISEASE
  6. FLUDARABINE PHOSPHATE [Concomitant]
     Indication: STEM CELL TRANSPLANT
     Dosage: 30 MG/M2 X 6
  7. METHOTREXATE [Concomitant]
     Indication: STEM CELL TRANSPLANT
  8. BUSULFAN [Concomitant]
     Indication: STEM CELL TRANSPLANT
     Dosage: 0.8 MG/KG X 12
  9. MELPHALAN HYDROCHLORIDE [Concomitant]
     Dosage: 60 MG/M2 X 3
  10. IRRADIATION [Concomitant]

REACTIONS (1)
  - GRAFT VERSUS HOST DISEASE [None]
